FAERS Safety Report 10830479 (Version 5)
Quarter: 2015Q3

REPORT INFORMATION
  Report Type: Report from Study
  Country: US (occurrence: US)
  Receive Date: 20150219
  Receipt Date: 20150824
  Transmission Date: 20151125
  Serious: Yes (Hospitalization)
  Sender: FDA-Public Use
  Company Number: US-SA-2015SA019710

PATIENT
  Age: 56 Year
  Sex: Female

DRUGS (1)
  1. AUBAGIO [Suspect]
     Active Substance: TERIFLUNOMIDE
     Indication: MULTIPLE SCLEROSIS
     Route: 048
     Dates: start: 20150126, end: 20150731

REACTIONS (7)
  - Hepatic enzyme increased [Unknown]
  - White blood cell count increased [Unknown]
  - Liver disorder [Unknown]
  - Musculoskeletal discomfort [Unknown]
  - Kidney infection [Unknown]
  - Dizziness [Unknown]
  - Back disorder [Unknown]

NARRATIVE: CASE EVENT DATE: 2015
